FAERS Safety Report 19481880 (Version 1)
Quarter: 2021Q3

REPORT INFORMATION
  Report Type: Spontaneous
  Country: DE (occurrence: DE)
  Receive Date: 20210701
  Receipt Date: 20210701
  Transmission Date: 20211014
  Serious: Yes (Hospitalization)
  Sender: FDA-Public Use
  Company Number: DE-ACCORD-229986

PATIENT
  Age: 60 Year
  Sex: Male
  Weight: 82 kg

DRUGS (4)
  1. PACLITAXEL/PACLITAXEL LIPOSOME [Suspect]
     Active Substance: PACLITAXEL
     Indication: OESOPHAGEAL CARCINOMA
     Route: 042
     Dates: start: 20200902, end: 20201012
  2. GRANISETRON [Concomitant]
     Active Substance: GRANISETRON
     Indication: SUPPORTIVE CARE
     Route: 042
     Dates: start: 20200902, end: 20201012
  3. CARBOPLATIN. [Suspect]
     Active Substance: CARBOPLATIN
     Indication: OESOPHAGEAL CARCINOMA
     Route: 042
     Dates: start: 20200902, end: 20201012
  4. DEXAMETHASONE. [Concomitant]
     Active Substance: DEXAMETHASONE
     Indication: SUPPORTIVE CARE
     Route: 042
     Dates: start: 20200902, end: 20201012

REACTIONS (4)
  - Off label use [Unknown]
  - Gastric ulcer [Unknown]
  - Neutropenia [Unknown]
  - Radiation oesophagitis [Unknown]

NARRATIVE: CASE EVENT DATE: 20201015
